FAERS Safety Report 8575266-7 (Version None)
Quarter: 2012Q3

REPORT INFORMATION
  Report Type: 
  Country: None (occurrence: None)
  Receive Date: 20120807
  Receipt Date: 20120802
  Transmission Date: 20120928
  Serious: No
  Sender: FDA-Public Use
  Company Number: JP-PFIZER INC-2012180761

PATIENT
  Age: 78 Year
  Sex: Male

DRUGS (1)
  1. ZYVOX [Suspect]
     Dosage: UNK
     Route: 041

REACTIONS (1)
  - ANGIOPATHY [None]
